FAERS Safety Report 11625145 (Version 1)
Quarter: 2015Q4

REPORT INFORMATION
  Report Type: Spontaneous
  Country: US (occurrence: US)
  Receive Date: 20151013
  Receipt Date: 20151013
  Transmission Date: 20160304
  Serious: No
  Sender: FDA-Public Use
  Company Number: US-GUERBET LLC-1042871

PATIENT
  Age: 40 Year
  Sex: Female

DRUGS (1)
  1. OXILAN [Suspect]
     Active Substance: IOXILAN
     Indication: COMPUTERISED TOMOGRAM
     Route: 042

REACTIONS (5)
  - Sneezing [Recovered/Resolved]
  - Tremor [Recovered/Resolved]
  - Contrast media reaction [None]
  - Hypersensitivity [None]
  - Throat tightness [Recovered/Resolved]
